FAERS Safety Report 24022746 (Version 2)
Quarter: 2024Q3

REPORT INFORMATION
  Report Type: Report from Study
  Country: CN (occurrence: CN)
  Receive Date: 20240627
  Receipt Date: 20240710
  Transmission Date: 20241016
  Serious: No
  Sender: ROCHE
  Company Number: CN-ROCHE-3212504

PATIENT
  Age: 43 Year
  Sex: Female

DRUGS (2)
  1. ALECENSA [Suspect]
     Active Substance: ALECTINIB HYDROCHLORIDE
     Indication: Non-small cell lung cancer metastatic
     Dosage: CAPSULES/224 CAPSULES/BOX
     Route: 048
     Dates: start: 20220405
  2. ALECENSA [Suspect]
     Active Substance: ALECTINIB HYDROCHLORIDE
     Route: 048

REACTIONS (3)
  - Hepatic function abnormal [Recovering/Resolving]
  - Blood viscosity increased [Recovering/Resolving]
  - Rash [Unknown]
